FAERS Safety Report 4397450-9 (Version None)
Quarter: 2004Q2

REPORT INFORMATION
  Report Type: 
  Country: None (occurrence: None)
  Receive Date: 20040621
  Receipt Date: 20031201
  Transmission Date: 20050107
  Serious: Yes (Death, Other)
  Sender: FDA-Public Use
  Company Number: USA-2003-0011767

PATIENT
  Age: 34 Year
  Sex: Female
  Weight: 73 kg

DRUGS (6)
  1. OXYCODONE HCL [Suspect]
     Route: 065
  2. HYDROCODONE BITARTRATE [Suspect]
     Route: 065
  3. OXYMORPHONE HYDROCHLORIDE [Suspect]
     Route: 065
  4. ALPRAZOLAM [Suspect]
     Route: 065
  5. FLUOXETINE [Suspect]
     Route: 065
  6. CAFFEINE (CAFFEINE) [Suspect]
     Route: 065

REACTIONS (3)
  - ACCIDENTAL OVERDOSE [None]
  - DRUG ABUSER [None]
  - MULTIPLE DRUG OVERDOSE [None]
